FAERS Safety Report 25474519 (Version 1)
Quarter: 2025Q2

REPORT INFORMATION
  Report Type: Spontaneous
  Country: US (occurrence: None)
  Receive Date: 20250619
  Receipt Date: 20250619
  Transmission Date: 20250717
  Serious: Yes (Other)
  Sender: FDA-CTU
  Company Number: None

PATIENT
  Age: 74 Year
  Sex: Male
  Weight: 70.3 kg

DRUGS (1)
  1. DUPIXENT [Suspect]
     Active Substance: DUPILUMAB
     Indication: Nasal polyps
     Dosage: FREQUENCY : WEEKLY;?
     Route: 058
     Dates: start: 20240614, end: 20250523

REACTIONS (1)
  - Injection site exfoliation [None]

NARRATIVE: CASE EVENT DATE: 20250602
